FAERS Safety Report 25968273 (Version 1)
Quarter: 2025Q4

REPORT INFORMATION
  Report Type: Spontaneous
  Country: EU (occurrence: EU)
  Receive Date: 20251028
  Receipt Date: 20251028
  Transmission Date: 20260117
  Serious: Yes (Other)
  Sender: ASTELLAS
  Company Number: EU-ASTELLAS-2025-AER-059180

PATIENT
  Age: 73 Year
  Sex: Male

DRUGS (7)
  1. ENZALUTAMIDE [Suspect]
     Active Substance: ENZALUTAMIDE
     Indication: Product used for unknown indication
     Route: 065
  2. ENZALUTAMIDE [Suspect]
     Active Substance: ENZALUTAMIDE
     Route: 065
  3. TALAZOPARIB [Suspect]
     Active Substance: TALAZOPARIB
     Indication: Product used for unknown indication
     Route: 065
  4. TALAZOPARIB [Suspect]
     Active Substance: TALAZOPARIB
     Route: 065
  5. LEUPROLIDE ACETATE [Concomitant]
     Active Substance: LEUPROLIDE ACETATE
     Indication: Product used for unknown indication
     Route: 065
  6. abiraterone acetate with Prednisone [Concomitant]
     Indication: Product used for unknown indication
     Dosage: ABIRATERONE ACETATE 1000 MG/D WITH PREDNISONE 5 MG/D
     Route: 065
  7. DOCETAXEL [Concomitant]
     Active Substance: DOCETAXEL
     Indication: Product used for unknown indication
     Dosage: 75 MG/M2 X 6 CYCLES
     Route: 065

REACTIONS (4)
  - Thrombocytopenia [Unknown]
  - Anaemia [Unknown]
  - Nausea [Unknown]
  - Dysgeusia [Unknown]
